FAERS Safety Report 5481785-2 (Version None)
Quarter: 2007Q4

REPORT INFORMATION
  Report Type: 
  Country: None (occurrence: None)
  Receive Date: 20071010
  Receipt Date: 20071001
  Transmission Date: 20080405
  Serious: Yes (Hospitalization)
  Sender: FDA-Public Use
  Company Number: US-ABBOTT-07P-163-0419299-00

PATIENT
  Sex: Female
  Weight: 50.848 kg

DRUGS (3)
  1. HUMIRA [Suspect]
     Indication: CROHN'S DISEASE
     Route: 058
     Dates: start: 20070801, end: 20070928
  2. HUMIRA [Suspect]
     Dates: start: 20070724, end: 20070724
  3. HUMIRA [Suspect]
     Dates: start: 20070710, end: 20070710

REACTIONS (2)
  - RENAL CYST [None]
  - UNEVALUABLE EVENT [None]
